FAERS Safety Report 4735672-5 (Version None)
Quarter: 2005Q3

REPORT INFORMATION
  Report Type: 
  Country: None (occurrence: None)
  Receive Date: 20050802
  Receipt Date: 20050721
  Transmission Date: 20060218
  Serious: Yes (Other)
  Sender: FDA-Public Use
  Company Number: 2005105236

PATIENT
  Age: 78 Year
  Sex: Female
  Weight: 73.9363 kg

DRUGS (7)
  1. CELEBREX [Suspect]
     Indication: OSTEOARTHRITIS
     Dosage: 200 MG (200 MG 1 IN 1 D), ORAL
     Route: 048
     Dates: start: 19990101
  2. LEVOTHROID [Concomitant]
  3. ACIPHEX (RABEPRZOLE SODIUM) [Concomitant]
  4. ADVAIR (FLUTICASPME PROPIONATE, SALMETEROL XINAFOATE) [Concomitant]
  5. ACETYLSALICYLIC ACID SRT [Concomitant]
  6. PREMARIN [Concomitant]
  7. LIPITOR [Concomitant]

REACTIONS (4)
  - ARTHRITIS [None]
  - CONDITION AGGRAVATED [None]
  - DIZZINESS [None]
  - FEELING ABNORMAL [None]
